FAERS Safety Report 11097692 (Version 1)
Quarter: 2015Q2

REPORT INFORMATION
  Report Type: Spontaneous
  Country: US (occurrence: None)
  Receive Date: 20150507
  Receipt Date: 20150507
  Transmission Date: 20150821
  Serious: Yes (Other)
  Sender: FDA-Public Use
  Company Number: None

PATIENT
  Age: 63 Year
  Sex: Female
  Weight: 70.31 kg

DRUGS (1)
  1. LETROZOLE. [Suspect]
     Active Substance: LETROZOLE
     Indication: BREAST CANCER
     Route: 048
     Dates: start: 20150121, end: 20150506

REACTIONS (4)
  - Fungal infection [None]
  - Skin lesion [None]
  - Incorrect product storage [None]
  - Disease recurrence [None]

NARRATIVE: CASE EVENT DATE: 20150504
